FAERS Safety Report 10488059 (Version 3)
Quarter: 2015Q1

REPORT INFORMATION
  Report Type: Report from Study
  Country: JP (occurrence: JP)
  Receive Date: 20141001
  Receipt Date: 20150308
  Transmission Date: 20150720
  Serious: Yes (Hospitalization, Other)
  Sender: FDA-Public Use
  Company Number: PHHY2014JP121543

PATIENT
  Age: 1 Year
  Sex: Female
  Weight: 12 kg

DRUGS (6)
  1. ASPIRIN. [Concomitant]
     Active Substance: ASPIRIN
     Dosage: 5 MG/KG, QD
     Route: 048
     Dates: start: 20140814
  2. ASPIRIN. [Concomitant]
     Active Substance: ASPIRIN
     Dosage: 30 MG/KG, QD
     Route: 048
     Dates: start: 20140902
  3. IMMUNOGLOBULINS [Suspect]
     Active Substance: HUMAN IMMUNOGLOBULIN G
     Indication: PRODUCT USED FOR UNKNOWN INDICATION
     Dosage: 2 G/KG
     Route: 065
     Dates: start: 20140806
  4. NEORAL [Suspect]
     Active Substance: CYCLOSPORINE
     Indication: KAWASAKI^S DISEASE
     Dosage: 60 MG, QD (60 MG DAILY 5 MG/KG/DAILY)
     Route: 048
     Dates: start: 20140806, end: 20140810
  5. ASPIRIN. [Concomitant]
     Active Substance: ASPIRIN
     Indication: KAWASAKI^S DISEASE
     Dosage: 30 MG/KG, QD
     Route: 048
     Dates: start: 20140806
  6. SIMPLE SYRUP [Concomitant]
     Indication: PRODUCT USED FOR UNKNOWN INDICATION
     Route: 048
     Dates: start: 20140807

REACTIONS (3)
  - Pericardial effusion [Recovered/Resolved]
  - Kawasaki^s disease [Recovered/Resolved]
  - Pericarditis [Recovered/Resolved]

NARRATIVE: CASE EVENT DATE: 20140808
